FAERS Safety Report 25602948 (Version 3)
Quarter: 2025Q4

REPORT INFORMATION
  Report Type: Spontaneous
  Country: JP (occurrence: JP)
  Receive Date: 20250724
  Receipt Date: 20251014
  Transmission Date: 20260117
  Serious: No
  Sender: BRISTOL-MYERS SQUIBB COMPANY
  Company Number: JP-BRISTOL-MYERS SQUIBB COMPANY-2025-053009

PATIENT
  Age: 76 Year
  Sex: Female

DRUGS (8)
  1. VIDAZA [Suspect]
     Active Substance: AZACITIDINE
     Indication: Cytopenia
     Dosage: 120MG/24 HOURS (DAILY - FROM DAY1 TO DAY7)
  2. VENETOCLAX [Suspect]
     Active Substance: VENETOCLAX
     Indication: Product used for unknown indication
     Dosage: 100MG/24 HOURS
  3. VENETOCLAX [Suspect]
     Active Substance: VENETOCLAX
     Dosage: 200MG/24 HOURS
  4. VENETOCLAX [Suspect]
     Active Substance: VENETOCLAX
     Dosage: 400MG/24 HOURS
  5. FEBUXOSTAT [Concomitant]
     Active Substance: FEBUXOSTAT
     Indication: Product used for unknown indication
  6. FLUCONAZOLE [Concomitant]
     Active Substance: FLUCONAZOLE
     Indication: Product used for unknown indication
  7. FLUCONAZOLE [Concomitant]
     Active Substance: FLUCONAZOLE
  8. ISOTONIC SODIUM CHLORIDE SOLUTION [Concomitant]
     Active Substance: SODIUM CHLORIDE
     Indication: Product used for unknown indication

REACTIONS (7)
  - Diarrhoea [Unknown]
  - Nausea [Unknown]
  - Chills [Unknown]
  - Blood lactate dehydrogenase increased [Unknown]
  - Fibrin degradation products increased [Unknown]
  - Blood calcium decreased [Unknown]
  - Off label use [Unknown]
